FAERS Safety Report 7774827-2 (Version None)
Quarter: 2011Q3

REPORT INFORMATION
  Report Type: 
  Country: None (occurrence: None)
  Receive Date: 20110923
  Receipt Date: 20110916
  Transmission Date: 20111222
  Serious: Yes (Hospitalization, Other)
  Sender: FDA-Public Use
  Company Number: DE-GENZYME-CAMP-1001893

PATIENT
  Sex: Male
  Weight: 80 kg

DRUGS (3)
  1. PEGFILGRASTIM [Suspect]
     Indication: NEUTROPENIA
     Dosage: 6 MG, QD
     Route: 058
     Dates: start: 20110902
  2. DEXAMETHASONE [Suspect]
     Indication: CHRONIC LYMPHOCYTIC LEUKAEMIA
     Dosage: 40 MG, QDX4
     Route: 048
     Dates: start: 20110902, end: 20110905
  3. CAMPATH [Suspect]
     Indication: CHRONIC LYMPHOCYTIC LEUKAEMIA
     Dosage: 30 MG, QD
     Route: 058
     Dates: start: 20110721, end: 20110812

REACTIONS (6)
  - PNEUMONIA [None]
  - FEBRILE NEUTROPENIA [None]
  - CHILLS [None]
  - INFECTION [None]
  - C-REACTIVE PROTEIN INCREASED [None]
  - TROPONIN INCREASED [None]
